FAERS Safety Report 8877698 (Version 1)
Quarter: 2012Q4

REPORT INFORMATION
  Report Type: 
  Country: BR (occurrence: BR)
  Receive Date: 20121024
  Receipt Date: 20121024
  Transmission Date: 20130627
  Serious: Yes (Other)
  Sender: FDA-Public Use
  Company Number: PHHY2012BR094342

PATIENT
  Sex: Female

DRUGS (2)
  1. DIOVAN [Suspect]
     Indication: BLOOD PRESSURE
     Dosage: 320mg, QD (in the morning)
  2. DIOVAN [Suspect]
     Dosage: 0.5 DF (320mg), BID (morning and night)

REACTIONS (5)
  - Fall [Recovered/Resolved]
  - Femur fracture [Recovered/Resolved]
  - Blood pressure increased [Recovered/Resolved]
  - Stress [Recovered/Resolved]
  - Wrong technique in drug usage process [Unknown]
